FAERS Safety Report 7535642-8 (Version None)
Quarter: 2011Q2

REPORT INFORMATION
  Report Type: 
  Country: None (occurrence: None)
  Receive Date: 20110607
  Receipt Date: 20110607
  Transmission Date: 20111010
  Serious: Yes (Other)
  Sender: FDA-Public Use
  Company Number: None

PATIENT
  Age: 7 Year
  Sex: Male
  Weight: 18.1439 kg

DRUGS (1)
  1. CONCERTA [Suspect]
     Indication: ATTENTION DEFICIT/HYPERACTIVITY DISORDER
     Dosage: 18MG ONCE DAILY PO (DURATION: LESS THAN ONE MONTH)
     Route: 048
     Dates: start: 20110504, end: 20110529

REACTIONS (3)
  - TREMOR [None]
  - MUSCLE TWITCHING [None]
  - DYSKINESIA [None]
